FAERS Safety Report 4825171-4 (Version None)
Quarter: 2005Q4

REPORT INFORMATION
  Report Type: 
  Country: None (occurrence: None)
  Receive Date: 20051109
  Receipt Date: 20051028
  Transmission Date: 20060501
  Serious: Yes (Hospitalization)
  Sender: FDA-Public Use
  Company Number: 2005P1000509

PATIENT
  Age: 70 Year
  Sex: Male
  Weight: 115 kg

DRUGS (8)
  1. RETEPLASE (RETEPLASE) [Suspect]
     Indication: ACUTE MYOCARDIAL INFARCTION
     Dosage: IV
     Route: 042
     Dates: start: 20050219, end: 20050219
  2. ABCIXIMAB (ABCIXIMAB) [Suspect]
     Indication: ACUTE MYOCARDIAL INFARCTION
     Dosage: IV
     Route: 042
     Dates: start: 20050219, end: 20050219
  3. HEPARIN [Concomitant]
  4. ASPIRIN [Concomitant]
  5. ACE INHIBITOR NOS [Concomitant]
  6. CHOLESTEROL - AND TRIGLYCERIDE REDUCERS [Concomitant]
  7. DIGITALIS [Concomitant]
  8. ANTIARRHYTHMICS, CLASS I AND III [Concomitant]

REACTIONS (5)
  - ANGINA UNSTABLE [None]
  - CARDIAC FAILURE [None]
  - CORONARY ARTERY DISEASE [None]
  - CORONARY ARTERY OCCLUSION [None]
  - PULMONARY OEDEMA [None]
